FAERS Safety Report 7628901-1 (Version None)
Quarter: 2011Q3

REPORT INFORMATION
  Report Type: 
  Country: None (occurrence: None)
  Receive Date: 20110715
  Receipt Date: 20110705
  Transmission Date: 20111222
  Serious: Yes (Death)
  Sender: FDA-Public Use
  Company Number: BENZ20110002

PATIENT
  Age: 82 Year
  Sex: Male

DRUGS (1)
  1. BENZTROPINE MESYLATE TABLETS 2MG (BENZATROPINE MESILATE) (2 MILLIGRAM) [Suspect]
     Dosage: 2 MG, 1 IN 1 D, ORAL
     Route: 048

REACTIONS (7)
  - DEHYDRATION [None]
  - INFECTIOUS PERITONITIS [None]
  - CONSTIPATION [None]
  - ABDOMINAL TENDERNESS [None]
  - VOMITING [None]
  - INTESTINAL OBSTRUCTION [None]
  - LARGE INTESTINE PERFORATION [None]
